FAERS Safety Report 4629377-9 (Version None)
Quarter: 2005Q2

REPORT INFORMATION
  Report Type: 
  Country: None (occurrence: None)
  Receive Date: 20050405
  Receipt Date: 20050417
  Transmission Date: 20051028
  Serious: Yes (Life-Threatening)
  Sender: FDA-Public Use
  Company Number: TOR 2005-0010

PATIENT
  Sex: Female

DRUGS (1)
  1. FARESTON [Suspect]
     Indication: BREAST CANCER RECURRENT
     Dosage: 120 MG
     Route: 048
     Dates: start: 20001207, end: 20041124

REACTIONS (1)
  - SARCOMA UTERUS [None]
